FAERS Safety Report 9753413 (Version 1)
Quarter: 2013Q4

REPORT INFORMATION
  Report Type: Spontaneous
  Country: US (occurrence: US)
  Receive Date: 20131213
  Receipt Date: 20131213
  Transmission Date: 20140711
  Serious: No
  Sender: FDA-Public Use
  Company Number: US-TEVA-403500USA

PATIENT
  Age: 24 Year
  Sex: Female
  Weight: 65.83 kg

DRUGS (3)
  1. PARAGARD 380A [Suspect]
     Indication: CONTRACEPTION
     Route: 015
     Dates: start: 201103
  2. MYCOPHENOLATE [Concomitant]
     Indication: SYSTEMIC LUPUS ERYTHEMATOSUS
  3. LISINOPRIL [Concomitant]
     Indication: HYPERTENSION

REACTIONS (1)
  - Menorrhagia [Not Recovered/Not Resolved]
